FAERS Safety Report 5597611-7 (Version None)
Quarter: 2008Q1

REPORT INFORMATION
  Report Type: 
  Country: None (occurrence: None)
  Receive Date: 20080121
  Receipt Date: 20080115
  Transmission Date: 20080703
  Serious: Yes (Death, Life-Threatening, Hospitalization)
  Sender: FDA-Public Use
  Company Number: D0055827A

PATIENT
  Age: 49 Year
  Sex: Male

DRUGS (9)
  1. VIANI [Suspect]
     Indication: CHRONIC OBSTRUCTIVE PULMONARY DISEASE
     Route: 055
     Dates: start: 20040816
  2. CLONIDIN [Suspect]
     Route: 048
     Dates: start: 20040813
  3. BRONCHOSPRAY [Suspect]
     Indication: CHRONIC OBSTRUCTIVE PULMONARY DISEASE
     Route: 055
     Dates: start: 20040813
  4. AQUAPHOR [Suspect]
     Indication: HYPERTENSION
     Route: 048
     Dates: start: 20040813
  5. OSYROL [Suspect]
     Route: 048
     Dates: start: 20040813
  6. PANTOZOL [Suspect]
     Indication: PROPHYLAXIS
     Dosage: 40MG PER DAY
     Route: 048
     Dates: start: 20040813
  7. FENISTIL RETARD [Suspect]
     Route: 048
     Dates: start: 20040817
  8. DECORTIN [Concomitant]
     Dosage: 20MG PER DAY
     Route: 048
     Dates: start: 20040904
  9. ALLOPURINOL [Concomitant]
     Dosage: 100MG PER DAY
     Route: 048
     Dates: start: 20040905, end: 20040905

REACTIONS (12)
  - BLISTER [None]
  - CONJUNCTIVITIS [None]
  - DEATH [None]
  - ERYTHEMA [None]
  - LIP EROSION [None]
  - NIKOLSKY'S SIGN [None]
  - ORAL MUCOSA EROSION [None]
  - PAIN OF SKIN [None]
  - PRURITUS GENERALISED [None]
  - PYREXIA [None]
  - RASH MACULAR [None]
  - TOXIC EPIDERMAL NECROLYSIS [None]
